FAERS Safety Report 24253031 (Version 2)
Quarter: 2024Q3

REPORT INFORMATION
  Report Type: Report from Study
  Country: US (occurrence: US)
  Receive Date: 20240827
  Receipt Date: 20240916
  Transmission Date: 20241016
  Serious: Yes (Death, Other)
  Sender: ACADIA PHARMACEUTICALS
  Company Number: US-ACADIA PHARMACEUTICALS INC.-ACA-2024-PIM-004292

PATIENT
  Sex: Male

DRUGS (5)
  1. NUPLAZID [Suspect]
     Active Substance: PIMAVANSERIN TARTRATE
     Indication: Parkinson^s disease
     Dosage: 34 MILLIGRAM, QD
     Route: 048
     Dates: start: 20230720, end: 20240729
  2. MORPHINE [Concomitant]
     Active Substance: MORPHINE
  3. ATROPINE [Concomitant]
     Active Substance: ATROPINE
  4. LORAZEPAM [Concomitant]
     Active Substance: LORAZEPAM
  5. CALCIUM ANTACID [Concomitant]
     Active Substance: CALCIUM CARBONATE

REACTIONS (2)
  - Parkinson^s disease [Fatal]
  - Neurodegenerative disorder [Fatal]
